FAERS Safety Report 8962710 (Version 1)
Quarter: 2012Q4

REPORT INFORMATION
  Report Type: Spontaneous
  Country: IT (occurrence: None)
  Receive Date: 20121206
  Receipt Date: 20121206
  Transmission Date: 20130627
  Serious: Yes (Hospitalization)
  Sender: FDA-Public Use
  Company Number: 2012AP004088

PATIENT
  Age: 65 Year
  Sex: Female

DRUGS (4)
  1. LEVOFLOXACIN (LEVOFLOXACIN) [Suspect]
     Indication: ACUTE CYSTITIS
     Route: 048
     Dates: start: 20121117, end: 20121117
  2. ADALAT (NIFEDIPINE) [Concomitant]
  3. CRESTOR (ROSUVASTATIN CALCIUM) [Concomitant]
  4. LIMBITRYL /00033501/ (LIMBATRIL /00033501) [Concomitant]

REACTIONS (3)
  - Malaise [None]
  - Paraesthesia [None]
  - Tachycardia [None]
